FAERS Safety Report 9562134 (Version 1)
Quarter: 2013Q3

REPORT INFORMATION
  Report Type: Spontaneous
  Country: US (occurrence: None)
  Receive Date: 20130830
  Receipt Date: 20130830
  Transmission Date: 20140515
  Serious: Yes (Hospitalization)
  Sender: FDA-Public Use
  Company Number: AMAG201203141

PATIENT
  Age: 73 Year
  Sex: Male
  Weight: 122.4 kg

DRUGS (11)
  1. FERAHEME (FERUMOXYTOL) INJECTION, 510MG [Suspect]
     Indication: IRON DEFICIENCY ANAEMIA
     Dosage: 120 MG, SINGLE, IV PUSH
     Dates: start: 20121107, end: 20121107
  2. NORVASC (AMLODIPINE BESILATE) [Concomitant]
  3. POTASSIUM CHLORIDE [Concomitant]
  4. ALLOPURINOL [Concomitant]
  5. FAMOTIDINE [Concomitant]
  6. DOXAZOSIN (DOXAZOSIN MESILATE) [Concomitant]
  7. CARVEDILOL [Concomitant]
  8. AMIODARONE (AMIODARONE HYDROCHLORIDE) [Concomitant]
  9. SIMVASTATIN [Concomitant]
  10. LOSARTAN [Concomitant]
  11. LASIX (FUROSEMIDE) [Concomitant]

REACTIONS (2)
  - Cardio-respiratory arrest [None]
  - Hypersensitivity [None]
